FAERS Safety Report 4992722-9 (Version None)
Quarter: 2006Q1

REPORT INFORMATION
  Report Type: 
  Country: None (occurrence: None)
  Receive Date: 20060315
  Receipt Date: 20050811
  Transmission Date: 20060701
  Serious: Yes (Hospitalization, Other)
  Sender: FDA-Public Use
  Company Number: USA0506101586

PATIENT
  Age: 67 Year
  Sex: Male

DRUGS (10)
  1. GEMZAR [Suspect]
     Indication: NON-SMALL CELL LUNG CANCER
     Dates: start: 20041201
  2. CARBOPLATIN [Concomitant]
  3. RADIATION THERAPY (RADIATON THERAPY) [Concomitant]
  4. GLUCOPHAGE (METFORMIN /00082701/) [Concomitant]
  5. LISINOPRIL (LISINOPRIL /00894001/) [Concomitant]
  6. ADVAIR DISKUS 100/50 [Concomitant]
  7. ASPIRIN [Concomitant]
  8. APO-METOPROLOL (METOPROLOL TARTRATE) [Concomitant]
  9. NEUPOGEN [Concomitant]
  10. PROCRIT [Concomitant]

REACTIONS (3)
  - PNEUMONITIS [None]
  - RENAL FAILURE ACUTE [None]
  - THROMBOCYTOPENIA [None]
